FAERS Safety Report 6438635-7 (Version None)
Quarter: 2009Q4

REPORT INFORMATION
  Report Type: 
  Country: None (occurrence: None)
  Receive Date: 20091112
  Receipt Date: 20091030
  Transmission Date: 20100525
  Serious: Yes (Other)
  Sender: FDA-Public Use
  Company Number: DE-MYLANLABS-2009S1018985

PATIENT
  Age: 41 Year
  Sex: Male
  Weight: 97 kg

DRUGS (1)
  1. METFORMIN HCL [Suspect]
     Indication: TYPE 2 DIABETES MELLITUS
     Dosage: 1000-3000MG
     Route: 048

REACTIONS (1)
  - ERECTILE DYSFUNCTION [None]
